FAERS Safety Report 6943493-8 (Version None)
Quarter: 2010Q3

REPORT INFORMATION
  Report Type: 
  Country: None (occurrence: None)
  Receive Date: 20100823
  Receipt Date: 20100812
  Transmission Date: 20110219
  Serious: Yes (Hospitalization, Other)
  Sender: FDA-Public Use
  Company Number: 104495

PATIENT
  Age: 63 Year
  Sex: Male

DRUGS (1)
  1. ACETAMINOPHEN [Suspect]
     Indication: INTRAOPERATIVE CARE
     Dosage: 500 MG IN 8 ML

REACTIONS (6)
  - CONJUNCTIVAL OEDEMA [None]
  - EYE MOVEMENT DISORDER [None]
  - EYELID OEDEMA [None]
  - INJECTION SITE PAIN [None]
  - MEDICATION ERROR [None]
  - WRONG DRUG ADMINISTERED [None]
